FAERS Safety Report 21106468 (Version 5)
Quarter: 2022Q4

REPORT INFORMATION
  Report Type: Report from Study
  Country: AU (occurrence: AU)
  Receive Date: 20220720
  Receipt Date: 20221024
  Transmission Date: 20230113
  Serious: Yes (Other)
  Sender: FDA-Public Use
  Company Number: AU-GLAXOSMITHKLINE-AU2022GSK107434

PATIENT

DRUGS (18)
  1. BELANTAMAB MAFODOTIN [Suspect]
     Active Substance: BELANTAMAB MAFODOTIN
     Indication: Plasma cell myeloma
     Dosage: 1.9 MG/KG
     Route: 042
     Dates: start: 20190911
  2. DEXAMETHASONE\LENALIDOMIDE [Suspect]
     Active Substance: DEXAMETHASONE\LENALIDOMIDE
     Indication: Plasma cell myeloma
     Dosage: UNK(LENALIDOMIDE)
     Route: 048
     Dates: start: 20190911, end: 20211021
  3. DEXAMETHASONE\LENALIDOMIDE [Suspect]
     Active Substance: DEXAMETHASONE\LENALIDOMIDE
     Dosage: UNK(DEXAMETHASONE)
     Route: 048
     Dates: start: 20190911, end: 20211224
  4. FLUOXETINE [Concomitant]
     Active Substance: FLUOXETINE HYDROCHLORIDE
     Indication: Depression
     Dosage: 40 MG, QD
     Route: 048
     Dates: start: 20100901
  5. SULFAMETHOXAZOLE [Concomitant]
     Active Substance: SULFAMETHOXAZOLE
     Indication: Prophylaxis
     Dosage: 800 MG, Z(EVERY 3 WEEKS)
     Route: 048
     Dates: start: 20190911
  6. TRIMETHOPRIM [Concomitant]
     Active Substance: TRIMETHOPRIM
     Indication: Prophylaxis
     Dosage: 160 MG, Z(3 TIMES PER WEEK)
     Route: 048
     Dates: start: 20190911
  7. ASPIRIN [Concomitant]
     Active Substance: ASPIRIN
     Indication: Prophylaxis
     Dosage: 100 MG, QD
     Route: 048
     Dates: start: 20190911
  8. CARBOMER [Concomitant]
     Active Substance: CARBOMER
     Indication: Prophylaxis
     Dosage: 1 DROPS AS REQUIRED
     Dates: start: 20191009
  9. VALACYCLOVIR HYDROCHLORIDE [Concomitant]
     Active Substance: VALACYCLOVIR HYDROCHLORIDE
     Indication: Prophylaxis
     Dosage: 500 MG, QD
     Route: 048
     Dates: start: 20191010
  10. ZOMETA [Concomitant]
     Active Substance: ZOLEDRONIC ACID
     Indication: Plasma cell myeloma
     Dosage: 4 MG, Z(EVERY 3 WEEKS)
     Route: 042
     Dates: start: 2016
  11. TEMAZEPAM [Concomitant]
     Active Substance: TEMAZEPAM
     Indication: Insomnia
     Dosage: 10 MG, QD
     Route: 048
     Dates: start: 20200327
  12. LOPERAMIDE [Concomitant]
     Active Substance: LOPERAMIDE
     Indication: Diarrhoea
     Dosage: 2 MG, PRN
     Route: 048
     Dates: start: 20200327
  13. CODEINE PHOSPHATE [Concomitant]
     Active Substance: CODEINE PHOSPHATE
     Indication: Cough
     Dosage: UNK, MG PRN
     Route: 048
     Dates: start: 20210811
  14. FLUOROMETHOLONE [Concomitant]
     Active Substance: FLUOROMETHOLONE
     Indication: Prophylaxis
     Dosage: 1 DROP PRN
     Route: 031
     Dates: start: 20210716
  15. IRBESARTAN [Concomitant]
     Active Substance: IRBESARTAN
     Indication: Blood pressure measurement
     Dosage: 75 MG, QD
     Route: 048
     Dates: start: 20210830
  16. ESOMEPRAZOLE [Concomitant]
     Active Substance: ESOMEPRAZOLE
     Indication: Gastrooesophageal reflux disease
     Dosage: 40 MG, QD
     Route: 048
     Dates: start: 20210830
  17. MAGNESIUM ASPARTATE [Concomitant]
     Active Substance: MAGNESIUM ASPARTATE
     Indication: Hypomagnesaemia
     Dosage: 1000 MG, QD
     Route: 048
     Dates: start: 20211203
  18. SEMAGLUTIDE [Concomitant]
     Active Substance: SEMAGLUTIDE
     Indication: Body mass index increased
     Dosage: 0.25 MG, WE
     Route: 058
     Dates: start: 20211129

REACTIONS (1)
  - Basal cell carcinoma [Recovered/Resolved]

NARRATIVE: CASE EVENT DATE: 20220516
